FAERS Safety Report 17165827 (Version 1)
Quarter: 2019Q4

REPORT INFORMATION
  Report Type: Spontaneous
  Country: US (occurrence: US)
  Receive Date: 20191217
  Receipt Date: 20191217
  Transmission Date: 20200122
  Serious: Yes (Hospitalization)
  Sender: FDA-Public Use
  Company Number: US-ASTRAZENECA-2019SF80753

PATIENT
  Age: 438 Day
  Sex: Female
  Weight: 10.7 kg

DRUGS (11)
  1. SILDENAFIL. [Concomitant]
     Active Substance: SILDENAFIL
     Route: 048
  2. PROPRANOLOL HCL [Concomitant]
     Active Substance: PROPRANOLOL HYDROCHLORIDE
  3. VITAMIN D3 [Concomitant]
     Active Substance: CHOLECALCIFEROL
  4. FLOVENT HFA [Concomitant]
     Active Substance: FLUTICASONE PROPIONATE
  5. FERROUS SULFATE. [Concomitant]
     Active Substance: FERROUS SULFATE
  6. OXYGEN. [Concomitant]
     Active Substance: OXYGEN
  7. OMEPRAZOLE. [Concomitant]
     Active Substance: OMEPRAZOLE
  8. CHLOROTHIAZIDE. [Concomitant]
     Active Substance: CHLOROTHIAZIDE
  9. SYNAGIS [Suspect]
     Active Substance: PALIVIZUMAB
     Indication: PREMATURE BABY
     Route: 030
  10. CHILDREN^S ACETAMINOPHEN [Concomitant]
     Active Substance: ACETAMINOPHEN
  11. SPIRONOLACTONE. [Concomitant]
     Active Substance: SPIRONOLACTONE

REACTIONS (1)
  - Respiratory syncytial virus infection [Unknown]

NARRATIVE: CASE EVENT DATE: 20191108
